FAERS Safety Report 15964385 (Version 4)
Quarter: 2019Q2

REPORT INFORMATION
  Report Type: Report from Study
  Country: None (occurrence: CA)
  Receive Date: 20190215
  Receipt Date: 20190401
  Transmission Date: 20190711
  Serious: Yes (Other)
  Sender: FDA-Public Use
  Company Number: CA-ABBVIE-18K-028-2250359-00

PATIENT
  Sex: Female

DRUGS (1)
  1. HUMIRA [Suspect]
     Active Substance: ADALIMUMAB
     Indication: RHEUMATOID ARTHRITIS
     Route: 058
     Dates: start: 20170519

REACTIONS (5)
  - Thyroid mass [Not Recovered/Not Resolved]
  - Choking sensation [Not Recovered/Not Resolved]
  - Cough [Not Recovered/Not Resolved]
  - Hypophagia [Not Recovered/Not Resolved]
  - Goitre [Not Recovered/Not Resolved]

NARRATIVE: CASE EVENT DATE: 2018
